FAERS Safety Report 10786680 (Version 2)
Quarter: 2015Q1

REPORT INFORMATION
  Report Type: Report from Study
  Country: PK (occurrence: PK)
  Receive Date: 20150211
  Receipt Date: 20150324
  Transmission Date: 20150721
  Serious: Yes (Death, Hospitalization, Other)
  Sender: FDA-Public Use
  Company Number: PK-INCYTE CORPORATION-2015IN000534

PATIENT
  Age: 75 Year
  Sex: Female
  Weight: 33 kg

DRUGS (1)
  1. JAKAFI [Suspect]
     Active Substance: RUXOLITINIB
     Indication: MYELOFIBROSIS
     Dosage: 5 MG, BID
     Route: 048
     Dates: start: 20150103, end: 20150126

REACTIONS (11)
  - Renal impairment [Unknown]
  - Thrombocytopenia [Recovering/Resolving]
  - Sepsis [Unknown]
  - Diarrhoea [Recovering/Resolving]
  - Pyrexia [Recovering/Resolving]
  - Circulatory collapse [Unknown]
  - General physical health deterioration [Unknown]
  - Death [Fatal]
  - Melaena [Recovering/Resolving]
  - Respiratory distress [Unknown]
  - Coagulation test abnormal [Unknown]

NARRATIVE: CASE EVENT DATE: 20150124
